FAERS Safety Report 9960733 (Version 1)
Quarter: 2014Q1

REPORT INFORMATION
  Report Type: Report from Study
  Country: US (occurrence: US)
  Receive Date: 20140305
  Receipt Date: 20140305
  Transmission Date: 20141002
  Serious: No
  Sender: FDA-Public Use
  Company Number: US-ABBVIE-13P-163-1110068-00

PATIENT
  Age: 69 Year
  Sex: Male

DRUGS (6)
  1. HUMIRA [Suspect]
     Indication: PSORIASIS
     Dates: start: 20130507
  2. TRAZODONE [Concomitant]
     Indication: DEPRESSION
  3. TRAZODONE [Concomitant]
     Indication: ANXIETY
  4. CLONAZEPAM [Concomitant]
     Indication: DEPRESSION
  5. CLONAZEPAM [Concomitant]
     Indication: ANXIETY
  6. ZOCOR [Concomitant]
     Indication: HYPERCHOLESTEROLAEMIA
     Dosage: DAILY

REACTIONS (1)
  - Nasopharyngitis [Not Recovered/Not Resolved]
